FAERS Safety Report 7957038-7 (Version None)
Quarter: 2011Q4

REPORT INFORMATION
  Report Type: 
  Country: None (occurrence: None)
  Receive Date: 20111205
  Receipt Date: 20111205
  Transmission Date: 20120403
  Serious: Yes (Other)
  Sender: FDA-Public Use
  Company Number: None

PATIENT
  Sex: Female
  Weight: 111.13 kg

DRUGS (1)
  1. VICTOZA [Suspect]
     Indication: TYPE 2 DIABETES MELLITUS
     Dosage: 1.8 MAXIMUM
     Route: 058
     Dates: start: 20110801, end: 20111105

REACTIONS (3)
  - VOMITING [None]
  - PAIN [None]
  - GASTROINTESTINAL DISORDER [None]
